FAERS Safety Report 8276592-1 (Version None)
Quarter: 2012Q2

REPORT INFORMATION
  Report Type: 
  Country: None (occurrence: None)
  Receive Date: 20120412
  Receipt Date: 20120410
  Transmission Date: 20120825
  Serious: No
  Sender: FDA-Public Use
  Company Number: US-BAYER-2012-035176

PATIENT
  Sex: Female
  Weight: 41 kg

DRUGS (2)
  1. VITAMIN TAB [Concomitant]
  2. ALEVE (CAPLET) [Suspect]
     Indication: BACK PAIN
     Dosage: 2, TWICE DAILY
     Route: 048
     Dates: start: 20120201

REACTIONS (1)
  - THERMAL BURN [None]
